FAERS Safety Report 25113336 (Version 1)
Quarter: 2025Q1

REPORT INFORMATION
  Report Type: Spontaneous
  Country: US (occurrence: US)
  Receive Date: 20250324
  Receipt Date: 20250324
  Transmission Date: 20250409
  Serious: Yes (Death)
  Sender: PFIZER
  Company Number: US-PFIZER INC-202500062860

PATIENT
  Age: 80 Year
  Sex: Male
  Weight: 52.154 kg

DRUGS (2)
  1. VYNDAMAX [Suspect]
     Active Substance: TAFAMIDIS
     Indication: Amyloidosis
     Dosage: 61MILLIGRAMS PER CAPSULE ONE PER DAY
  2. CYCLOSPORINE [Concomitant]
     Active Substance: CYCLOSPORINE
     Indication: Liver disorder
     Dosage: 75MILLIGRAMS PER DAY, TWO IN THE MORNING AND ONE AT NIGHT

REACTIONS (1)
  - Prostate cancer [Fatal]
